FAERS Safety Report 11948855 (Version 1)
Quarter: 2016Q1

REPORT INFORMATION
  Report Type: Spontaneous
  Country: US (occurrence: US)
  Receive Date: 20160125
  Receipt Date: 20160125
  Transmission Date: 20160526
  Serious: Yes (Hospitalization)
  Sender: FDA-Public Use
  Company Number: US-TEVA-627961USA

PATIENT
  Age: 65 Year
  Sex: Male
  Weight: 177 kg

DRUGS (12)
  1. ASCORBIC ACID. [Concomitant]
     Active Substance: ASCORBIC ACID
     Route: 048
  2. WARFARIN [Suspect]
     Active Substance: WARFARIN
     Indication: THROMBOSIS PROPHYLAXIS
     Dosage: 7.5MG DAILY
     Route: 048
  3. SULFADIAZINE. [Concomitant]
     Active Substance: SULFADIAZINE
     Indication: SKIN ULCER
     Dosage: 1% TWICE DAILY
     Route: 065
  4. IPRATROPIUM BROMIDE. [Concomitant]
     Active Substance: IPRATROPIUM BROMIDE
     Indication: ASTHMA
     Dosage: 2 PUFFS EVERY 6 HOURS
     Route: 055
  5. CADEXOMER IODINE [Concomitant]
     Active Substance: CADEXOMER IODINE
     Indication: SKIN ULCER
     Dosage: 0.9% DAILY
     Route: 065
  6. ZINC SULFATE [Concomitant]
     Active Substance: ZINC SULFATE\ZINC SULFATE ANHYDROUS
     Route: 048
  7. PARACETAMOL [Concomitant]
     Active Substance: ACETAMINOPHEN
     Dosage: 300MG
     Route: 065
  8. CODEINE [Concomitant]
     Active Substance: CODEINE
     Indication: ARTHRALGIA
     Dosage: 30MG EVERY 6-8 HOURS
     Route: 048
  9. DILTIAZEM [Concomitant]
     Active Substance: DILTIAZEM
     Dosage: 180MG ONCE DAILY
     Route: 048
  10. TOLTERODINE [Concomitant]
     Active Substance: TOLTERODINE
     Indication: HYPERTONIC BLADDER
     Dosage: 4MG ONCE DAILY
     Route: 048
  11. CEFTAROLINE FOSAMIL [Interacting]
     Active Substance: CEFTAROLINE FOSAMIL
     Indication: CELLULITIS
     Dosage: 400MG EVERY 12 HOURS
     Route: 042
  12. METOPROLOL SUCCINATE. [Concomitant]
     Active Substance: METOPROLOL SUCCINATE
     Indication: HYPERTENSION
     Dosage: 50MG ONCE DAILY
     Route: 048

REACTIONS (2)
  - International normalised ratio increased [Recovered/Resolved]
  - Drug interaction [Recovered/Resolved]
